FAERS Safety Report 9253289 (Version 2)
Quarter: 2013Q2

REPORT INFORMATION
  Report Type: Spontaneous
  Country: US (occurrence: US)
  Receive Date: 20130424
  Receipt Date: 20130604
  Transmission Date: 20140414
  Serious: Yes (Other)
  Sender: FDA-Public Use
  Company Number: US-ALLERGAN-1305518US

PATIENT
  Age: 53 Year
  Sex: Female

DRUGS (2)
  1. REFRESH OPTIVE SENSITIVE [Suspect]
     Indication: PRODUCT USED FOR UNKNOWN INDICATION
     Dosage: A FEW DAYS
     Route: 047
  2. DUREZOL [Concomitant]
     Indication: CORNEAL GRAFT REJECTION
     Dosage: UNK
     Route: 047

REACTIONS (5)
  - Intraocular pressure increased [Recovered/Resolved]
  - Abnormal sensation in eye [Unknown]
  - Eye haemorrhage [Unknown]
  - Eye pain [Unknown]
  - Vision blurred [Unknown]
